FAERS Safety Report 16283385 (Version 2)
Quarter: 2020Q2

REPORT INFORMATION
  Report Type: Spontaneous
  Country: US (occurrence: US)
  Receive Date: 20190507
  Receipt Date: 20200422
  Transmission Date: 20200713
  Serious: Yes (Hospitalization, Other)
  Sender: FDA-Public Use
  Company Number: US-ASTRAZENECA-2019SE61399

PATIENT
  Age: 57 Year
  Sex: Male
  Weight: 90.4 kg

DRUGS (35)
  1. SIMVASTATIN. [Concomitant]
     Active Substance: SIMVASTATIN
     Indication: BLOOD CHOLESTEROL
     Dates: start: 201103, end: 201510
  2. VITAMIN D2 [Concomitant]
     Active Substance: ERGOCALCIFEROL
  3. PRAVASTATIN. [Concomitant]
     Active Substance: PRAVASTATIN
  4. CHLORTHALIDONE. [Concomitant]
     Active Substance: CHLORTHALIDONE
  5. NITROGLYCERINE [Concomitant]
     Active Substance: NITROGLYCERIN
  6. PREVACID [Suspect]
     Active Substance: LANSOPRAZOLE
     Indication: GASTROOESOPHAGEAL REFLUX DISEASE
     Route: 065
     Dates: start: 19960510, end: 20181231
  7. METFORMIN [Concomitant]
     Active Substance: METFORMIN HYDROCHLORIDE
  8. PRILOSEC OTC [Suspect]
     Active Substance: OMEPRAZOLE MAGNESIUM
     Indication: GASTROOESOPHAGEAL REFLUX DISEASE
     Route: 048
     Dates: start: 2008, end: 2011
  9. CARISOPRODOL. [Concomitant]
     Active Substance: CARISOPRODOL
  10. DIAZEPAM. [Concomitant]
     Active Substance: DIAZEPAM
  11. PRILOSEC [Suspect]
     Active Substance: OMEPRAZOLE MAGNESIUM
     Indication: GASTROOESOPHAGEAL REFLUX DISEASE
     Dosage: BEFORE A MEAL
     Route: 048
     Dates: start: 20120618, end: 2016
  12. CEPHALEXIN. [Concomitant]
     Active Substance: CEPHALEXIN
  13. GLIPIZIDE. [Concomitant]
     Active Substance: GLIPIZIDE
  14. LEVEMIR [Concomitant]
     Active Substance: INSULIN DETEMIR
  15. VICTOZA [Concomitant]
     Active Substance: LIRAGLUTIDE
  16. OXYCODONE-ACETAMINOPHEN [Concomitant]
     Active Substance: ACETAMINOPHEN\OXYCODONE HYDROCHLORIDE
     Indication: PAIN
     Dates: start: 201103, end: 201712
  17. TRIAMCINOLON [Concomitant]
  18. CLOBETASOL [Concomitant]
     Active Substance: CLOBETASOL
  19. PRILOSEC OTC [Suspect]
     Active Substance: OMEPRAZOLE MAGNESIUM
     Indication: GASTROOESOPHAGEAL REFLUX DISEASE
     Route: 048
     Dates: start: 199505, end: 201812
  20. PRILOSEC [Suspect]
     Active Substance: OMEPRAZOLE MAGNESIUM
     Indication: GASTROOESOPHAGEAL REFLUX DISEASE
     Dosage: GENERIC OMEPRAZOLE
     Route: 065
     Dates: start: 20110425, end: 20171102
  21. TRAMADOL. [Concomitant]
     Active Substance: TRAMADOL
     Indication: PAIN
     Dates: start: 201103, end: 201610
  22. CARVEDILOL. [Concomitant]
     Active Substance: CARVEDILOL
     Indication: BLOOD PRESSURE ABNORMAL
     Dates: start: 201712, end: 201810
  23. CYCLOBENZAPRINE. [Concomitant]
     Active Substance: CYCLOBENZAPRINE
  24. AMOXICILLIN. [Concomitant]
     Active Substance: AMOXICILLIN
  25. PIOGLITAZONE. [Concomitant]
     Active Substance: PIOGLITAZONE
  26. TENORETIC [Concomitant]
     Active Substance: ATENOLOL\CHLORTHALIDONE
  27. NOVOLOG [Concomitant]
     Active Substance: INSULIN ASPART
  28. POTA CHLORIDE [Concomitant]
  29. ENALAPRIL [Concomitant]
     Active Substance: ENALAPRIL
  30. HUMULIN NOS [Concomitant]
     Active Substance: INSULIN HUMAN
  31. TRULICITY [Concomitant]
     Active Substance: DULAGLUTIDE
  32. PREVACID [Suspect]
     Active Substance: LANSOPRAZOLE
     Indication: GASTROOESOPHAGEAL REFLUX DISEASE
     Route: 065
     Dates: start: 199505, end: 201812
  33. NAPROXEN. [Concomitant]
     Active Substance: NAPROXEN
     Indication: PAIN
     Dates: start: 201102, end: 201810
  34. LISINOPRIL. [Concomitant]
     Active Substance: LISINOPRIL
     Indication: HYPERTENSION
     Dates: start: 201108, end: 201210
  35. LORATADINE. [Concomitant]
     Active Substance: LORATADINE

REACTIONS (1)
  - Chronic kidney disease [Not Recovered/Not Resolved]

NARRATIVE: CASE EVENT DATE: 2012
